FAERS Safety Report 5857993-5 (Version None)
Quarter: 2008Q3

REPORT INFORMATION
  Report Type: 
  Country: None (occurrence: None)
  Receive Date: 20080826
  Receipt Date: 20080819
  Transmission Date: 20090109
  Serious: Yes (Death, Hospitalization)
  Sender: FDA-Public Use
  Company Number: US-AVENTIS-200810956US

PATIENT
  Sex: Female
  Weight: 54.09 kg

DRUGS (20)
  1. KETEK [Suspect]
     Indication: SINUSITIS
     Dates: start: 20051214, end: 20051201
  2. KETEK [Suspect]
     Indication: BRONCHITIS
     Dates: start: 20051214, end: 20051201
  3. PREMARIN [Concomitant]
     Dosage: DOSE: UNK
  4. PROZAC [Concomitant]
     Dates: start: 19990623
  5. VITAMIN TAB [Concomitant]
     Dosage: DOSE: UNK
  6. DARVOCET-N 100 [Concomitant]
     Dosage: DOSE: UNK
  7. TYLENOL W/ CODEINE NO. 3 [Concomitant]
     Dosage: DOSE: UNK
     Dates: start: 19990301
  8. BACTRIM DS [Concomitant]
     Dosage: DOSE: UNK
     Dates: start: 20051221, end: 20051201
  9. KEFLEX [Concomitant]
     Dates: start: 20051201, end: 20051201
  10. PEPCID [Concomitant]
     Indication: GASTRITIS
     Dosage: DOSE: UNK
  11. BICILLIN                           /00026701/ [Concomitant]
     Indication: PNEUMONIA
     Dosage: DOSE: UNK
     Route: 030
     Dates: start: 20050907
  12. BICILLIN                           /00026701/ [Concomitant]
     Dosage: DOSE: UNK
     Route: 030
     Dates: start: 20051130
  13. BICILLIN                           /00026701/ [Concomitant]
     Dosage: DOSE: UNK
     Route: 030
     Dates: start: 20051221
  14. BICILLIN                           /00026701/ [Concomitant]
     Indication: SINUSITIS
     Dosage: DOSE: UNK
     Route: 030
     Dates: start: 20050907
  15. BICILLIN                           /00026701/ [Concomitant]
     Dosage: DOSE: UNK
     Route: 030
     Dates: start: 20051130
  16. BICILLIN                           /00026701/ [Concomitant]
     Dosage: DOSE: UNK
     Route: 030
     Dates: start: 20051221
  17. BICILLIN                           /00026701/ [Concomitant]
     Indication: BRONCHITIS
     Dosage: DOSE: UNK
     Route: 030
     Dates: start: 20050907
  18. BICILLIN                           /00026701/ [Concomitant]
     Dosage: DOSE: UNK
     Route: 030
     Dates: start: 20051130
  19. BICILLIN                           /00026701/ [Concomitant]
     Dosage: DOSE: UNK
     Route: 030
     Dates: start: 20051221
  20. ACTONEL [Concomitant]
     Dosage: DOSE: UNK

REACTIONS (42)
  - ABASIA [None]
  - ABDOMINAL PAIN [None]
  - ACIDOSIS [None]
  - ANAEMIA [None]
  - ANTIMITOCHONDRIAL ANTIBODY POSITIVE [None]
  - ASCITES [None]
  - ASTHENIA [None]
  - AUTOIMMUNE HEPATITIS [None]
  - BLOOD BILIRUBIN INCREASED [None]
  - BLOOD IMMUNOGLOBULIN G INCREASED [None]
  - BRONCHOPNEUMONIA [None]
  - COAGULOPATHY [None]
  - CYSTITIS HAEMORRHAGIC [None]
  - GASTRIC ULCER [None]
  - GASTRIC ULCER PERFORATION [None]
  - GASTROINTESTINAL HAEMORRHAGE [None]
  - HAEMATEMESIS [None]
  - HAEMORRHAGE [None]
  - HEADACHE [None]
  - HEPATIC CIRRHOSIS [None]
  - HEPATIC ENZYME INCREASED [None]
  - HEPATITIS [None]
  - HYPERHIDROSIS [None]
  - HYPOPHAGIA [None]
  - JAUNDICE [None]
  - MENTAL IMPAIRMENT [None]
  - MULTI-ORGAN FAILURE [None]
  - NAUSEA [None]
  - NECROSIS ISCHAEMIC [None]
  - OEDEMA PERIPHERAL [None]
  - PERITONEAL HAEMORRHAGE [None]
  - PERITONITIS [None]
  - PLEURAL DISORDER [None]
  - PLEURAL EFFUSION [None]
  - PULMONARY CONGESTION [None]
  - PULMONARY OEDEMA [None]
  - PYREXIA [None]
  - RENAL FAILURE [None]
  - RESPIRATORY FAILURE [None]
  - SEPTIC SHOCK [None]
  - SMOOTH MUSCLE ANTIBODY POSITIVE [None]
  - VOMITING [None]
